FAERS Safety Report 15678066 (Version 1)
Quarter: 2018Q4

REPORT INFORMATION
  Report Type: Report from Study
  Country: JP (occurrence: JP)
  Receive Date: 20181201
  Receipt Date: 20181201
  Transmission Date: 20190205
  Serious: Yes (Other)
  Sender: FDA-Public Use
  Company Number: JP-AMGEN-JPNNI2018171160

PATIENT
  Age: 69 Year
  Sex: Female
  Weight: 63.4 kg

DRUGS (4)
  1. CARFILZOMIB [Suspect]
     Active Substance: CARFILZOMIB
     Indication: PLASMA CELL MYELOMA
     Dosage: 20 MG/M2, EVERYDAY
     Route: 041
     Dates: start: 20171129, end: 20171130
  2. DEXAMETHASONE. [Suspect]
     Active Substance: DEXAMETHASONE
     Indication: PLASMA CELL MYELOMA
     Dosage: 20 MG/DAY (2017/11/29, 11/30, 12/06, 12/07, 12/13, 12/14, 2018/01/16, 01/17, 01/23, 01/24, 01/30, 01
     Route: 065
     Dates: start: 20171129, end: 20180323
  3. VALACICLOVIR HYDROCHLORIDE [Concomitant]
     Active Substance: VALACYCLOVIR HYDROCHLORIDE
     Indication: ANTIVIRAL PROPHYLAXIS
     Dosage: 500 MG, EVERYDAY
     Route: 065
  4. CARFILZOMIB [Suspect]
     Active Substance: CARFILZOMIB
     Dosage: 56 MG/M2/DAY (2017/12/06, 12/07, 12/13, 12/14, 2018/01/16, 01/17, 01/23, 01/24, 01/30, 01/31, 02/20,
     Route: 041
     Dates: start: 20171206, end: 20180323

REACTIONS (1)
  - Cellulitis [Recovered/Resolved]

NARRATIVE: CASE EVENT DATE: 20180330
